FAERS Safety Report 5519725-X (Version None)
Quarter: 2007Q4

REPORT INFORMATION
  Report Type: 
  Country: None (occurrence: None)
  Receive Date: 20071116
  Receipt Date: 20070808
  Transmission Date: 20080405
  Serious: No
  Sender: FDA-Public Use
  Company Number: A0666045A

PATIENT
  Age: 59 Year
  Sex: Male

DRUGS (7)
  1. COREG CR [Suspect]
     Dosage: 10MG PER DAY
     Route: 048
     Dates: start: 20070701, end: 20070723
  2. ALBUTEROL [Concomitant]
  3. DIOVAN [Concomitant]
  4. LASIX [Concomitant]
  5. POTASSIUM CHLORIDE [Concomitant]
  6. SINGULAIR [Concomitant]
  7. SPIRONOLACTONE [Concomitant]

REACTIONS (1)
  - VISION BLURRED [None]
